FAERS Safety Report 4771193-1 (Version None)
Quarter: 2005Q3

REPORT INFORMATION
  Report Type: 
  Country: None (occurrence: None)
  Receive Date: 20050914
  Receipt Date: 20050831
  Transmission Date: 20060218
  Serious: Yes (Death)
  Sender: FDA-Public Use
  Company Number: USA0508106678

PATIENT
  Age: 62 Year
  Sex: Male
  Weight: 127 kg

DRUGS (8)
  1. CYMBALTA [Suspect]
     Indication: DIABETIC NEUROPATHY
     Dosage: 120 MG
     Dates: start: 20050601
  2. METFORMIN HCL [Concomitant]
  3. GLYBURIDE [Concomitant]
  4. PLENDIL [Concomitant]
  5. LOTENSIN [Concomitant]
  6. OXYCONTIN [Concomitant]
  7. KLONOPIN [Concomitant]
  8. STOOL SOFTENER (DOCUSATE SODIUM) [Concomitant]

REACTIONS (1)
  - DEATH [None]
